FAERS Safety Report 4891139-5 (Version None)
Quarter: 2006Q1

REPORT INFORMATION
  Report Type: 
  Country: None (occurrence: None)
  Receive Date: 20060123
  Receipt Date: 20060111
  Transmission Date: 20060701
  Serious: Yes (Death)
  Sender: FDA-Public Use
  Company Number: GBWYE293011JAN06

PATIENT
  Age: 35 Year
  Sex: Male

DRUGS (2)
  1. EFFEXOR [Suspect]
     Indication: DEPRESSION
     Dosage: UNKNOWN 'HIGH DOSE'
     Dates: start: 20040101, end: 20051201
  2. MIRTAZAPINE [Concomitant]

REACTIONS (1)
  - DEATH [None]
